FAERS Safety Report 4353075-2 (Version None)
Quarter: 2004Q2

REPORT INFORMATION
  Report Type: 
  Country: None (occurrence: None)
  Receive Date: 20040430
  Receipt Date: 20040331
  Transmission Date: 20050107
  Serious: No
  Sender: FDA-Public Use
  Company Number: 205624

PATIENT
  Age: 30 Year
  Sex: Female
  Weight: 115.6 kg

DRUGS (26)
  1. XOLAIR [Suspect]
     Indication: ASTHMA
     Dosage: 300 MG, Q4W, SUBCUTANEOUS
     Route: 058
     Dates: start: 20031125, end: 20040220
  2. DOXEPIN (DOXEPIN HYDROCHLORIDE) [Concomitant]
  3. CELEBREX [Concomitant]
  4. NEURONTIN (NEURONTIN) [Concomitant]
  5. ACTONEL [Concomitant]
  6. SINGULAIR [Concomitant]
  7. NEXIUM [Concomitant]
  8. BENADRYL [Concomitant]
  9. ALLEGRA-D [Concomitant]
  10. ALLEGRA [Concomitant]
  11. PREDNISONE [Concomitant]
  12. HUMIBID (GUAIFENESIN) [Concomitant]
  13. VERAPAMIL [Concomitant]
  14. ASPIRIN [Concomitant]
  15. PAXIL [Concomitant]
  16. TRAZODONE (TRAZODONE HYDROCHLORIDE) [Concomitant]
  17. PLAQUENIL [Concomitant]
  18. SKELAXIN [Concomitant]
  19. VICODIN (HYDROCODONE BITARTRATE, ACETAMINOPHEN) [Concomitant]
  20. ULTRACET (TRAMADOL HYDROCHLORIDE, ACETAMINOPHEN) [Concomitant]
  21. QVAR (BECLOMETHASONE DIPROPIONATE) [Concomitant]
  22. SEREVENT DISKUS (SALMETEROL XINAFOATE) [Concomitant]
  23. FLONASE [Concomitant]
  24. ATROVENT NASAL SPRAY (IPRATROPIUM BROMIDE) [Concomitant]
  25. XOPENEX [Concomitant]
  26. ATARAX [Concomitant]

REACTIONS (1)
  - PRURITUS GENERALISED [None]
